FAERS Safety Report 25753744 (Version 1)
Quarter: 2025Q3

REPORT INFORMATION
  Report Type: Spontaneous
  Country: US (occurrence: US)
  Receive Date: 20250903
  Receipt Date: 20250903
  Transmission Date: 20251021
  Serious: No
  Sender: RANBAXY
  Company Number: US-SUN PHARMACEUTICAL INDUSTRIES LTD-2025R1-496974

PATIENT
  Sex: Female

DRUGS (1)
  1. GUAIFENESIN [Suspect]
     Active Substance: GUAIFENESIN
     Indication: Chronic obstructive pulmonary disease
     Route: 065
     Dates: start: 202502, end: 20250217

REACTIONS (3)
  - Rash [Unknown]
  - Dizziness [Unknown]
  - Headache [Recovered/Resolved]
